FAERS Safety Report 5907901-3 (Version None)
Quarter: 2008Q4

REPORT INFORMATION
  Report Type: 
  Country: None (occurrence: None)
  Receive Date: 20081003
  Receipt Date: 20080922
  Transmission Date: 20090506
  Serious: Yes (Hospitalization)
  Sender: FDA-Public Use
  Company Number: US-ELI_LILLY_AND_COMPANY-US200809004752

PATIENT
  Sex: Female

DRUGS (3)
  1. EVISTA [Suspect]
     Dosage: UNK, UNKNOWN
     Route: 065
     Dates: start: 20080801, end: 20080920
  2. VALIUM [Concomitant]
     Dosage: UNK, UNKNOWN
     Route: 065
  3. ANTIHYPERTENSIVES [Concomitant]
     Indication: BLOOD PRESSURE INCREASED
     Dosage: UNK, UNKNOWN
     Route: 065

REACTIONS (14)
  - ABDOMINAL PAIN UPPER [None]
  - AGITATION [None]
  - BLOOD POTASSIUM DECREASED [None]
  - DEHYDRATION [None]
  - HAEMATOMA [None]
  - INFLUENZA [None]
  - MEMORY IMPAIRMENT [None]
  - MUSCLE SPASMS [None]
  - MYALGIA [None]
  - NAUSEA [None]
  - RASH [None]
  - SOMNOLENCE [None]
  - TOOTHACHE [None]
  - VISION BLURRED [None]
